FAERS Safety Report 5411625-9 (Version None)
Quarter: 2007Q3

REPORT INFORMATION
  Report Type: 
  Country: None (occurrence: None)
  Receive Date: 20070810
  Receipt Date: 20070731
  Transmission Date: 20080115
  Serious: Yes (Hospitalization)
  Sender: FDA-Public Use
  Company Number: GB-PFIZER INC-2007060613

PATIENT
  Age: 22 Month
  Sex: Female

DRUGS (5)
  1. PHENYTOIN [Suspect]
     Indication: CONVULSION
     Route: 042
  2. QUININE [Interacting]
     Route: 042
  3. PARALDEHYDE [Concomitant]
  4. TOPIRAMATE [Concomitant]
  5. VALPROIC ACID [Concomitant]

REACTIONS (7)
  - DRUG INEFFECTIVE [None]
  - DRUG INTERACTION [None]
  - PLASMODIUM FALCIPARUM INFECTION [None]
  - PYREXIA [None]
  - STATUS EPILEPTICUS [None]
  - TACHYCARDIA [None]
  - TACHYPNOEA [None]
